FAERS Safety Report 5418276-0 (Version None)
Quarter: 2007Q3

REPORT INFORMATION
  Report Type: 
  Country: None (occurrence: None)
  Receive Date: 20070817
  Receipt Date: 20070816
  Transmission Date: 20080115
  Serious: Yes (Hospitalization)
  Sender: FDA-Public Use
  Company Number: B0483446A

PATIENT
  Age: 53 Year
  Sex: Male

DRUGS (14)
  1. EPZICOM [Suspect]
     Indication: HIV INFECTION
     Dosage: 1U PER DAY
     Route: 048
     Dates: start: 20060926, end: 20060928
  2. RETROVIR [Suspect]
     Indication: HIV INFECTION
     Route: 048
     Dates: start: 20051003, end: 20060925
  3. VIDEX EC [Suspect]
     Indication: HIV INFECTION
     Route: 048
     Dates: start: 20051003, end: 20060925
  4. STOCRIN [Suspect]
     Indication: HIV INFECTION
     Route: 048
     Dates: start: 20051003, end: 20060925
  5. KALETRA [Suspect]
     Indication: HIV INFECTION
     Dosage: 6U PER DAY
     Route: 048
     Dates: start: 20060926, end: 20060928
  6. KALETRA [Concomitant]
     Route: 048
     Dates: start: 20061027
  7. EPIVIR [Concomitant]
     Indication: HIV INFECTION
     Dosage: 150MG TWICE PER DAY
     Route: 048
     Dates: start: 20061027
  8. VIREAD [Concomitant]
     Indication: HIV INFECTION
     Route: 048
     Dates: start: 20061027
  9. URSO 250 [Concomitant]
     Indication: HEPATITIS B
     Dosage: 200MG THREE TIMES PER DAY
     Route: 048
     Dates: start: 20060401, end: 20060928
  10. CINAL [Concomitant]
     Indication: HEPATITIS B
     Dosage: 1000MG THREE TIMES PER DAY
     Route: 048
     Dates: start: 20060401, end: 20060928
  11. SEVEN E_P [Concomitant]
     Indication: GASTRITIS
     Dosage: 3 PER DAY
     Route: 048
     Dates: start: 20060401, end: 20060928
  12. LENDORMIN [Concomitant]
     Indication: INSOMNIA
     Dosage: .25MG PER DAY
     Route: 048
     Dates: start: 20060401, end: 20060928
  13. FAMOTIDINE [Concomitant]
     Dosage: 20MG PER DAY
     Route: 048
     Dates: start: 20061101
  14. MAGNESIUM OXIDE [Concomitant]
     Indication: CONSTIPATION PROPHYLAXIS
     Dosage: 500MG THREE TIMES PER DAY
     Route: 048
     Dates: start: 20061031

REACTIONS (4)
  - ASCITES [None]
  - HEPATITIS FULMINANT [None]
  - JAUNDICE [None]
  - LIVER DISORDER [None]
